FAERS Safety Report 7516692-4 (Version None)
Quarter: 2011Q2

REPORT INFORMATION
  Report Type: 
  Country: None (occurrence: None)
  Receive Date: 20110601
  Receipt Date: 20110523
  Transmission Date: 20111010
  Serious: Yes (Death, Life-Threatening, Hospitalization)
  Sender: FDA-Public Use
  Company Number: FR-TEVA-283816ISR

PATIENT
  Sex: Male
  Weight: 60 kg

DRUGS (27)
  1. BUDESONIDE W/FORMOTEROL FUMARATE [Concomitant]
     Indication: ASTHMA
     Dosage: 800 MICROGRAM;
     Dates: start: 20100415, end: 20101026
  2. LEVOFLOXACIN [Concomitant]
     Indication: LUNG INFECTION
     Route: 048
     Dates: start: 20100906, end: 20100916
  3. BARIUM SULFATE [Concomitant]
     Indication: RENAL FAILURE
     Route: 042
     Dates: start: 20101009, end: 20101011
  4. DIURETICS [Concomitant]
     Indication: HYPERTENSION
  5. THALIDOMIDE [Suspect]
     Indication: MULTIPLE MYELOMA
     Route: 048
     Dates: start: 20091029
  6. PREDNISONE [Suspect]
     Dates: start: 20100819, end: 20100822
  7. ACETAMINOPHEN [Concomitant]
     Indication: BONE PAIN
     Route: 048
     Dates: start: 20090801, end: 20091026
  8. FENTANYL [Concomitant]
     Indication: BONE PAIN
     Route: 062
     Dates: start: 20100918, end: 20101004
  9. FENTANYL CITRATE [Concomitant]
     Indication: HYPERTENSION
     Dosage: 3600 MICROGRAM;
     Route: 048
     Dates: start: 20100918, end: 20101026
  10. PREDNISONE [Suspect]
     Indication: MULTIPLE MYELOMA
     Dates: start: 20091029
  11. ATENOLOL [Concomitant]
     Indication: ATRIAL FIBRILLATION
     Route: 048
     Dates: start: 20100304, end: 20101026
  12. FENTANYL [Concomitant]
     Indication: HYPERTENSION
  13. ESCITALOPRAM OXALATE [Concomitant]
     Indication: HYPERTENSION
  14. FENTANYL CITRATE [Concomitant]
     Indication: BONE PAIN
     Route: 048
     Dates: start: 20100721, end: 20100917
  15. THALIDOMIDE [Suspect]
     Route: 048
     Dates: start: 20100819, end: 20100929
  16. MELPHALAN HYDROCHLORIDE [Suspect]
     Indication: MULTIPLE MYELOMA
     Dates: start: 20091029
  17. ANTITHROMBOTIC AGENTS [Concomitant]
     Indication: THROMBOSIS PROPHYLAXIS
  18. DIURETICS [Concomitant]
     Indication: GENERALISED OEDEMA
     Route: 042
     Dates: start: 20101010, end: 20101001
  19. MELPHALAN HYDROCHLORIDE [Suspect]
     Dates: start: 20100819, end: 20100822
  20. TADENEN (PYGEUM AFRICANUM) [Concomitant]
     Indication: PROPHYLAXIS
     Dosage: 50 MILLIGRAM;
     Route: 048
     Dates: start: 20100504, end: 20100926
  21. LEVOFLOXACIN [Concomitant]
     Indication: HYPERTENSION
  22. BARIUM SULFATE [Concomitant]
     Indication: HYPERTENSION
  23. HEPARIN SODIUM [Concomitant]
     Indication: THROMBOSIS PROPHYLAXIS
     Dosage: .5 ML;
     Route: 058
     Dates: start: 20100414, end: 20100929
  24. ATENOLOL [Concomitant]
     Indication: HYPERTENSION
  25. ESCITALOPRAM OXALATE [Concomitant]
     Indication: HYPOKINESIA
     Route: 048
     Dates: start: 20100901, end: 20101026
  26. DEXAMETHASONE [Suspect]
     Indication: MULTIPLE MYELOMA
     Dosage: DAY 1, 4, 8, 11,
     Route: 048
     Dates: start: 20101011, end: 20101021
  27. BORTEZOMIB [Suspect]
     Indication: MULTIPLE MYELOMA
     Dosage: DAY 1, 4, 8,
     Route: 042
     Dates: start: 20101011, end: 20101021

REACTIONS (5)
  - LUNG INFECTION PSEUDOMONAL [None]
  - PULMONARY HAEMORRHAGE [None]
  - LUNG INFECTION [None]
  - PERFORMANCE STATUS DECREASED [None]
  - MULTIPLE MYELOMA [None]
